FAERS Safety Report 16691853 (Version 1)
Quarter: 2019Q3

REPORT INFORMATION
  Report Type: Spontaneous
  Country: ES (occurrence: ES)
  Receive Date: 20190812
  Receipt Date: 20190812
  Transmission Date: 20191004
  Serious: Yes (Other)
  Sender: FDA-Public Use
  Company Number: ES-TEVA-2019-ES-1091185

PATIENT
  Age: 59 Year
  Sex: Male

DRUGS (10)
  1. SINEMET PLUS 25 MG/100 MG [Interacting]
     Active Substance: CARBIDOPA\LEVODOPA
     Indication: PARKINSON^S DISEASE
     Dosage: 1 DOSAGE FORMS, 8 HOURS, 1-1-1
     Route: 048
     Dates: start: 20180307
  2. PANTOPRAZOL 20 MG COMPRIMIDO [Concomitant]
     Active Substance: PANTOPRAZOLE SODIUM
  3. OPTOVITE B12 1.000 MICROGRAMOS SOLUCI?N INYECTABLE , 5 AMPOLLAS DE 2 M [Concomitant]
     Active Substance: CYANOCOBALAMIN
  4. VENTOLIN 100 MICROGRAMOS/INHALACI?N SUSPENSI?N PARA INHALACI?N EN ENVA [Concomitant]
  5. RIVOTRIL 2 MG COMPRIMIDOS [Concomitant]
  6. SECALIP 145 MG COMPRIMIDOS RECUBIERTOS CON PELICULA [Concomitant]
  7. PAROXETINA 20 MG 56 COMPRIMIDOS [Suspect]
     Active Substance: PAROXETINE
     Indication: MIXED ANXIETY AND DEPRESSIVE DISORDER
     Dosage: 40 MILLIGRAM, 1 DAYS,2-0-0
     Route: 048
     Dates: start: 20180710
  8. PRAVASTATINA 20 MG COMPRIMIDO [Concomitant]
  9. TROMALYT 300, CAPSULAS DURAS DE LIBERACION PROLONGADA [Concomitant]
  10. XADAGO [Interacting]
     Active Substance: SAFINAMIDE MESYLATE
     Indication: PARKINSON^S DISEASE
     Dosage: 1-0-0
     Route: 048
     Dates: start: 20190624, end: 20190712

REACTIONS (2)
  - Impulsive behaviour [Recovering/Resolving]
  - Drug interaction [Unknown]

NARRATIVE: CASE EVENT DATE: 2019
